FAERS Safety Report 9921586 (Version 1)
Quarter: 2014Q1

REPORT INFORMATION
  Report Type: Spontaneous
  Country: US (occurrence: US)
  Receive Date: 20140225
  Receipt Date: 20140225
  Transmission Date: 20141002
  Serious: Yes (Other)
  Sender: FDA-Public Use
  Company Number: US-SA-2014SA022551

PATIENT
  Sex: Female

DRUGS (2)
  1. LANTUS SOLOSTAR [Suspect]
     Route: 058
  2. SOLOSTAR [Concomitant]

REACTIONS (7)
  - Cardiomegaly [Unknown]
  - Neoplasm malignant [Unknown]
  - Multiple sclerosis [Unknown]
  - Cataract [Unknown]
  - Visual impairment [Unknown]
  - Hypertension [Unknown]
  - Adverse event [Unknown]
